FAERS Safety Report 18437225 (Version 3)
Quarter: 2020Q4

REPORT INFORMATION
  Report Type: Report from Study
  Country: US (occurrence: US)
  Receive Date: 20201028
  Receipt Date: 20201125
  Transmission Date: 20210114
  Serious: Yes (Hospitalization)
  Sender: FDA-Public Use
  Company Number: US-JNJFOC-20200944163

PATIENT
  Sex: Female
  Weight: 54.93 kg

DRUGS (6)
  1. EPOPROSTENOL SODIUM. [Suspect]
     Active Substance: EPOPROSTENOL SODIUM
     Route: 042
  2. EPOPROSTENOL SODIUM. [Suspect]
     Active Substance: EPOPROSTENOL SODIUM
     Route: 042
  3. AMBRISENTAN [Concomitant]
     Active Substance: AMBRISENTAN
  4. SELEXIPAG [Suspect]
     Active Substance: SELEXIPAG
     Indication: PULMONARY HYPERTENSION
     Route: 048
  5. EPOPROSTENOL SODIUM. [Suspect]
     Active Substance: EPOPROSTENOL SODIUM
     Indication: PULMONARY HYPERTENSION
     Route: 042
  6. TADALAFIL. [Concomitant]
     Active Substance: TADALAFIL

REACTIONS (9)
  - Adverse event [Unknown]
  - Nausea [Unknown]
  - Disease progression [Unknown]
  - Pain in jaw [Unknown]
  - Headache [Unknown]
  - Vomiting [Unknown]
  - Myalgia [Unknown]
  - Appetite disorder [Unknown]
  - Diarrhoea [Unknown]
